FAERS Safety Report 7872214-X (Version None)
Quarter: 2011Q4

REPORT INFORMATION
  Report Type: 
  Country: None (occurrence: None)
  Receive Date: 20111029
  Receipt Date: 20110315
  Transmission Date: 20120403
  Serious: No
  Sender: FDA-Public Use
  Company Number: US-AMGEN-USASP2011014341

PATIENT
  Age: 30 Year
  Sex: Female

DRUGS (1)
  1. ENBREL [Suspect]
     Indication: PSORIASIS
     Dates: start: 20040801

REACTIONS (9)
  - ABDOMINAL PAIN UPPER [None]
  - STAPHYLOCOCCAL INFECTION [None]
  - FAECES DISCOLOURED [None]
  - INCREASED VISCOSITY OF BRONCHIAL SECRETION [None]
  - NAUSEA [None]
  - PAIN [None]
  - CONTUSION [None]
  - HEADACHE [None]
  - COUGH [None]
